FAERS Safety Report 7176837-5 (Version None)
Quarter: 2010Q4

REPORT INFORMATION
  Report Type: 
  Country: None (occurrence: None)
  Receive Date: 20101220
  Receipt Date: 20101215
  Transmission Date: 20110411
  Serious: Yes (Hospitalization, Other)
  Sender: FDA-Public Use
  Company Number: NL-BRISTOL-MYERS SQUIBB COMPANY-15445497

PATIENT
  Age: 73 Year
  Sex: Male

DRUGS (2)
  1. CETUXIMAB [Suspect]
     Indication: NON-SMALL CELL LUNG CANCER
     Dosage: LAST TREATMENT 29DEC2010; CUMULATIVE DOSE UNTILL 15DEC2010 2300MG
     Route: 042
     Dates: start: 20101101
  2. CISPLATIN [Suspect]
     Indication: NON-SMALL CELL LUNG CANCER
     Dosage: LAST TREATMENT 09DEC2010; CUMULATIVE DOSE UNTIL 15DEC2010 240MG
     Route: 042
     Dates: start: 20101108

REACTIONS (2)
  - MALAISE [None]
  - RADIATION OESOPHAGITIS [None]
